FAERS Safety Report 5624156-8 (Version None)
Quarter: 2008Q1

REPORT INFORMATION
  Report Type: 
  Country: None (occurrence: None)
  Receive Date: 20080213
  Receipt Date: 20080210
  Transmission Date: 20080703
  Serious: Yes (Life-Threatening)
  Sender: FDA-Public Use
  Company Number: PHHO2004US17638

PATIENT
  Age: 38 Year
  Sex: Male
  Weight: 69 kg

DRUGS (1)
  1. AMN107 [Suspect]
     Indication: CHRONIC MYELOID LEUKAEMIA
     Dosage: UNK, UNK
     Route: 048
     Dates: start: 20041104, end: 20041129

REACTIONS (1)
  - CARDIAC ENZYMES INCREASED [None]
